FAERS Safety Report 10648200 (Version 1)
Quarter: 2014Q4

REPORT INFORMATION
  Report Type: Spontaneous
  Country: US (occurrence: None)
  Receive Date: 20141211
  Receipt Date: 20141211
  Transmission Date: 20150529
  Serious: Yes (Other)
  Sender: FDA-Public Use
  Company Number: None

PATIENT
  Age: 41 Year
  Sex: Male
  Weight: 97.52 kg

DRUGS (1)
  1. INVEGA SUSTENNA [Suspect]
     Active Substance: PALIPERIDONE PALMITATE
     Indication: SCHIZOPHRENIA, PARANOID TYPE
     Dosage: 234 MG/1.5    1 TIME A MONTH  SYRINGE?MAYBE FOR 1 YEAR

REACTIONS (7)
  - Blood pressure increased [None]
  - Injection site swelling [None]
  - Weight increased [None]
  - Heart rate increased [None]
  - Injection site rash [None]
  - Blood glucose increased [None]
  - Blood cholesterol increased [None]
